FAERS Safety Report 15788560 (Version 1)
Quarter: 2019Q1

REPORT INFORMATION
  Report Type: Spontaneous
  Country: US (occurrence: US)
  Receive Date: 20190104
  Receipt Date: 20190104
  Transmission Date: 20190417
  Serious: Yes (Other)
  Sender: FDA-Public Use
  Company Number: US-ASTELLAS-2018US047587

PATIENT
  Sex: Male

DRUGS (3)
  1. XTANDI [Suspect]
     Active Substance: ENZALUTAMIDE
     Dosage: 160 MG (4), ONCE DAILY
     Route: 048
  2. XTANDI [Suspect]
     Active Substance: ENZALUTAMIDE
     Indication: PROSTATE CANCER
     Dosage: 160 MG (4), ONCE DAILY
     Route: 048
  3. XTANDI [Suspect]
     Active Substance: ENZALUTAMIDE
     Dosage: 120 MG (3 PILLS), ONCE DAILY (REDUCED DOSE)
     Route: 048

REACTIONS (10)
  - Gastrooesophageal reflux disease [Unknown]
  - Fatigue [Unknown]
  - Hot flush [Unknown]
  - Fall [Unknown]
  - Eyelid disorder [Unknown]
  - Night sweats [Unknown]
  - Nausea [Unknown]
  - Treatment noncompliance [Unknown]
  - Haematoma [Unknown]
  - Amnesia [Unknown]
